FAERS Safety Report 18320363 (Version 4)
Quarter: 2020Q4

REPORT INFORMATION
  Report Type: Report from Study
  Country: BE (occurrence: BE)
  Receive Date: 20200928
  Receipt Date: 20201201
  Transmission Date: 20210113
  Serious: Yes (Hospitalization, Other)
  Sender: FDA-Public Use
  Company Number: BE-BRISTOL-MYERS SQUIBB COMPANY-BMS-2020-073576

PATIENT
  Age: 65 Year
  Sex: Male

DRUGS (1)
  1. NIVOLUMAB [Suspect]
     Active Substance: NIVOLUMAB
     Indication: MALIGNANT MELANOMA
     Dosage: 480 MILLIGRAM, QMO
     Route: 042
     Dates: start: 20200331, end: 20200722

REACTIONS (4)
  - Neuropathy peripheral [Not Recovered/Not Resolved]
  - Tooth abscess [Recovered/Resolved]
  - Osteoarthritis [Recovered/Resolved]
  - Polymyalgia rheumatica [Not Recovered/Not Resolved]

NARRATIVE: CASE EVENT DATE: 20200408
